FAERS Safety Report 9254229 (Version 5)
Quarter: 2013Q3

REPORT INFORMATION
  Report Type: Report from Study
  Country: US (occurrence: US)
  Receive Date: 20130425
  Receipt Date: 20130828
  Transmission Date: 20140515
  Serious: Yes (Life-Threatening, Hospitalization, Other)
  Sender: FDA-Public Use
  Company Number: PHEH2013US008872

PATIENT
  Age: 67 Year
  Sex: Female
  Weight: 77.98 kg

DRUGS (11)
  1. GLEEVEC [Suspect]
     Indication: CHORDOMA
     Dosage: UNK UKN, UNK
     Route: 048
     Dates: start: 20120328
  2. GLEEVEC [Suspect]
     Indication: BONE CANCER
     Dosage: 400 MG, QD
     Route: 048
     Dates: start: 20130319, end: 20130410
  3. GLEEVEC [Suspect]
     Indication: OFF LABEL USE
     Dosage: 100 MG, QD
     Route: 048
  4. GLEEVEC [Suspect]
     Dosage: 200 MG, DAILY
     Route: 048
     Dates: start: 20130531, end: 20130611
  5. GLEEVEC [Suspect]
     Dosage: UNK
     Route: 048
  6. ETODOLAC [Concomitant]
     Dosage: UNK UKN, UNK
  7. DETROL [Concomitant]
     Dosage: UNK UKN, UNK
  8. SIMVASTATIN [Concomitant]
     Dosage: UNK UKN, UNK
  9. VAGIFEM [Concomitant]
     Dosage: UNK UKN, UNK
  10. MIRALAX [Concomitant]
     Dosage: UNK UKN, UNK
  11. OMEPRAZOLE [Concomitant]
     Dosage: UNK UKN, UNK

REACTIONS (17)
  - Feeling abnormal [Unknown]
  - Fall [Unknown]
  - Gait disturbance [Unknown]
  - Middle ear effusion [Recovered/Resolved]
  - Blood creatinine increased [Recovered/Resolved]
  - Ear infection [Unknown]
  - Nausea [Recovered/Resolved]
  - Dysgeusia [Unknown]
  - Deafness [Unknown]
  - Vertigo [Unknown]
  - Renal failure [Unknown]
  - Dizziness [Unknown]
  - Vomiting [Unknown]
  - Dehydration [Unknown]
  - Weight decreased [Unknown]
  - Alopecia [Unknown]
  - Fluid retention [Unknown]
